FAERS Safety Report 8627581 (Version 2)
Quarter: 2012Q4

REPORT INFORMATION
  Report Type: Report from Study
  Country: US (occurrence: US)
  Receive Date: 20120621
  Receipt Date: 20121227
  Transmission Date: 20130627
  Serious: Yes (Hospitalization)
  Sender: FDA-Public Use
  Company Number: US-UCBSA-057811

PATIENT
  Age: 75 Year
  Sex: Female

DRUGS (36)
  1. CERTOLIZUMAB PEGOL [Suspect]
     Route: 058
     Dates: start: 20110728, end: 20120427
  2. CERTOLIZUMAB PEGOL [Suspect]
     Route: 058
     Dates: start: 20110616, end: 20110714
  3. FOLIC ACID [Concomitant]
     Indication: RHEUMATOID ARTHRITIS
     Route: 048
     Dates: start: 2009
  4. METHOTREXATE [Concomitant]
     Indication: RHEUMATOID ARTHRITIS
     Route: 030
     Dates: start: 2009
  5. PREDNISONE [Concomitant]
     Indication: RHEUMATOID ARTHRITIS
     Route: 048
     Dates: start: 2009
  6. ASA [Concomitant]
     Indication: PROPHYLAXIS
     Route: 048
     Dates: start: 2007
  7. CRESTOR [Concomitant]
     Indication: HYPERLIPIDAEMIA
     Route: 048
     Dates: start: 2002
  8. DEXILANT [Concomitant]
     Indication: GASTROOESOPHAGEAL REFLUX DISEASE
     Route: 048
     Dates: start: 2011, end: 20120427
  9. LASIX [Concomitant]
     Indication: OEDEMA
     Route: 048
     Dates: start: 20120215, end: 20120217
  10. LASIX [Concomitant]
     Indication: OEDEMA
     Route: 048
     Dates: start: 20120218, end: 20120223
  11. LASIX [Concomitant]
     Indication: OEDEMA
     Route: 048
     Dates: start: 20120224
  12. METOPROLOL [Concomitant]
     Indication: HYPERTENSION
     Route: 048
     Dates: start: 2008
  13. METOPROLOL [Concomitant]
     Indication: HYPERTENSION
     Route: 048
     Dates: start: 20120427
  14. POTASSIUM CHLORIDE [Concomitant]
     Indication: SUPPLEMENTATION THERAPY
     Route: 048
     Dates: start: 201202, end: 20120504
  15. POTASSIUM CHLORIDE [Concomitant]
     Indication: SUPPLEMENTATION THERAPY
     Route: 048
     Dates: start: 20120427
  16. PRO AIR HFA [Concomitant]
     Indication: ASTHMA
     Dosage: 2 PUFFS
     Route: 055
  17. PROPAFENONE [Concomitant]
     Indication: TACHYCARDIA
     Route: 048
     Dates: start: 2010, end: 20120427
  18. PROPAFENONE [Concomitant]
     Indication: TACHYCARDIA
     Route: 048
     Dates: start: 20120427
  19. SYMBICORT HFA [Concomitant]
     Indication: ASTHMA
     Dosage: 2 PUFFS BID
     Route: 055
     Dates: start: 2010
  20. SYNTHROID [Concomitant]
     Indication: HYPOTHYROIDISM
     Route: 048
     Dates: start: 2007
  21. VITAMIN D3 [Concomitant]
     Indication: SUPPLEMENTATION THERAPY
     Dosage: 5000 UNITS
     Route: 048
     Dates: start: 2009
  22. GLIMEPIRIDE [Concomitant]
     Indication: DIABETES MELLITUS
     Route: 048
     Dates: start: 2011
  23. HYDROCORTISONE [Concomitant]
     Indication: RASH
     Route: 061
     Dates: start: 20111230
  24. IBUPROFEN [Concomitant]
     Indication: LIGAMENT SPRAIN
     Route: 048
     Dates: start: 20110120
  25. ALBUTEROL [Concomitant]
     Indication: ASTHMA
     Dosage: 1-2 PUFFS PRN
     Route: 055
     Dates: start: 2009, end: 20120427
  26. ALBUTEROL [Concomitant]
     Indication: WHEEZING
     Dosage: 1-2 PUFFS PRN
     Route: 055
     Dates: start: 2009, end: 20120427
  27. ALBUTEROL [Concomitant]
     Indication: ASTHMA
     Dosage: 2 PUFFS QID
     Route: 055
     Dates: start: 20120427
  28. ALBUTEROL [Concomitant]
     Indication: WHEEZING
     Dosage: 2 PUFFS QID
     Route: 055
     Dates: start: 20120427
  29. CARDIZEM CD [Concomitant]
     Indication: ANGINA PECTORIS
     Route: 048
     Dates: start: 2010
  30. ZYMAXID [Concomitant]
     Indication: CATARACT
     Dosage: 1 DROP QID
     Route: 047
     Dates: start: 20120314
  31. PREDNISOLONE ACETATE [Concomitant]
     Indication: CATARACT
     Dosage: 1 DROP QID
     Route: 047
     Dates: start: 20120314
  32. BROMDAY [Concomitant]
     Indication: CATARACT
     Dosage: 1 DROP QD
     Route: 047
     Dates: start: 20120314
  33. ZYRTEC [Concomitant]
     Indication: RASH
     Route: 048
     Dates: start: 201201
  34. LIDOCAINE [Concomitant]
     Indication: BLADDER CATHETERISATION
     Route: 061
     Dates: start: 20120430, end: 20120430
  35. ACETAMINOPHEN [Concomitant]
     Indication: ARTHRALGIA
     Route: 048
     Dates: start: 20120427
  36. PEPCID [Concomitant]
     Indication: GASTROOESOPHAGEAL REFLUX DISEASE
     Route: 048
     Dates: start: 2010, end: 20120427

REACTIONS (7)
  - Atrial fibrillation [Recovered/Resolved]
  - Red blood cell count decreased [Not Recovered/Not Resolved]
  - Haematocrit decreased [Not Recovered/Not Resolved]
  - Haemoglobin decreased [Not Recovered/Not Resolved]
  - Swelling face [Unknown]
  - Haematoma [Recovered/Resolved]
  - Procedural pain [Not Recovered/Not Resolved]
